FAERS Safety Report 4446782-4 (Version None)
Quarter: 2004Q3

REPORT INFORMATION
  Report Type: 
  Country: None (occurrence: None)
  Receive Date: 20040910
  Receipt Date: 20040901
  Transmission Date: 20050211
  Serious: Yes (Disabling)
  Sender: FDA-Public Use
  Company Number: 207390

PATIENT
  Age: 43 Year
  Sex: Female

DRUGS (7)
  1. XOLAIR [Suspect]
     Indication: ASTHMA
     Dosage: 300 MG, Q4W, SUBCUTANEOUS
     Route: 058
     Dates: start: 20031001
  2. ADVAIR (SALMETEROL XINAFOATE, FLUTICASONE PROPIONATE) [Concomitant]
  3. NEXIUM [Concomitant]
  4. FLONASE [Concomitant]
  5. ZYRTEC [Concomitant]
  6. SINGULAIR [Concomitant]
  7. ALBUTEROL INHALER (ALBUTEROL, ALBUTEROL SULFATE) [Concomitant]

REACTIONS (6)
  - CHEST DISCOMFORT [None]
  - CONVULSION [None]
  - DYSGEUSIA [None]
  - FEELING COLD [None]
  - PARAPLEGIA [None]
  - PARESIS [None]
